FAERS Safety Report 22226034 (Version 2)
Quarter: 2023Q2

REPORT INFORMATION
  Report Type: Spontaneous
  Country: US (occurrence: None)
  Receive Date: 20230419
  Receipt Date: 20230420
  Transmission Date: 20230721
  Serious: Yes (Hospitalization)
  Sender: FDA-Public Use
  Company Number: US-ROCHE-3332027

PATIENT
  Age: 63 Year
  Sex: Male

DRUGS (8)
  1. XOLAIR [Suspect]
     Active Substance: OMALIZUMAB
     Indication: Asthma
     Dosage: STRENGTH: 150 MG/ML SYR, ONE 150 MG AND 75 MG SYRINGE
     Route: 058
     Dates: start: 20200501
  2. AMOXICILLIN [Concomitant]
     Active Substance: AMOXICILLIN
  3. BACTRIM [Concomitant]
     Active Substance: SULFAMETHOXAZOLE\TRIMETHOPRIM
     Dosage: 400 TO 80 MG
  4. BIAXIN [Concomitant]
     Active Substance: CLARITHROMYCIN
  5. DOXYCYCLINE HYDROCHLORIDE [Concomitant]
     Active Substance: DOXYCYCLINE HYDROCHLORIDE
  6. NIACIN [Concomitant]
     Active Substance: NIACIN
  7. NIASPAN [Concomitant]
     Active Substance: NIACIN
  8. PENICILLIN G SODIUM [Concomitant]
     Active Substance: PENICILLIN G SODIUM

REACTIONS (2)
  - Nasopharyngitis [Unknown]
  - Exposure to allergen [Unknown]

NARRATIVE: CASE EVENT DATE: 20230413
